FAERS Safety Report 10187438 (Version 1)
Quarter: 2014Q2

REPORT INFORMATION
  Report Type: Spontaneous
  Country: CL (occurrence: None)
  Receive Date: 20140520
  Receipt Date: 20140520
  Transmission Date: 20141212
  Serious: Yes (Hospitalization)
  Sender: FDA-Public Use
  Company Number: 2014050043

PATIENT
  Age: 67 Year
  Sex: Male

DRUGS (12)
  1. LUPRAC [Suspect]
     Indication: HYPERTENSION
     Route: 048
  2. SINTROM [Suspect]
     Indication: CARDIAC VALVE DISEASE
     Route: 048
     Dates: start: 20140305, end: 20140411
  3. PANTOPRAZOLE [Concomitant]
  4. PANADOL (PARACETAMOL) [Concomitant]
  5. NOVOMIX (INSULIN ASPART, INSULIN APART PROTAMINE) [Concomitant]
  6. CALCIMAGON-D3 (COLECALCIFEROL, CALCIUM CARBONATE) [Concomitant]
  7. BENERVA (THIAMINE HYDROCHLORIDE) [Concomitant]
  8. IMPORTAL (LACTITOL) [Concomitant]
  9. ZOLPIDEM (ZOLPIDEM) [Concomitant]
  10. METOPROLOL (METOPROLOL) [Suspect]
     Indication: HYPERTENSION
     Route: 048
  11. LISINOPRIL (LISINOPRIL DIHYDRATE) (UNKNOWN [Suspect]
     Indication: HYPERTENSION
     Route: 048
  12. ASPIRIN CARDIO (ACETYLSALICYLIC ACID) [Suspect]
     Indication: DIABETIC VASCULAR DISORDER
     Route: 048
     Dates: start: 20140305, end: 20140411

REACTIONS (7)
  - Therapeutic response increased [None]
  - Epistaxis [None]
  - Haemorrhagic anaemia [None]
  - Hypotension [None]
  - Tachycardia [None]
  - International normalised ratio decreased [None]
  - Cardiac failure [None]
